FAERS Safety Report 6585278-0 (Version None)
Quarter: 2010Q1

REPORT INFORMATION
  Report Type: 
  Country: None (occurrence: None)
  Receive Date: 20100213
  Receipt Date: 20100213
  Transmission Date: 20100710
  Serious: Yes (Other)
  Sender: FDA-Public Use
  Company Number: None

PATIENT
  Age: 5 Year
  Sex: Female
  Weight: 16.8 kg

DRUGS (1)
  1. ACETAMINOPHEN [Suspect]
     Indication: PAIN MANAGEMENT
     Dosage: 650MG ONCE RECTAL
     Route: 054
     Dates: start: 20100202, end: 20100202

REACTIONS (4)
  - HAEMATOMA [None]
  - HAEMORRHAGE [None]
  - LACERATION [None]
  - MEDICATION ERROR [None]
